FAERS Safety Report 22055574 (Version 1)
Quarter: 2023Q1

REPORT INFORMATION
  Report Type: Spontaneous
  Country: US (occurrence: None)
  Receive Date: 20230302
  Receipt Date: 20230302
  Transmission Date: 20230417
  Serious: Yes (Hospitalization)
  Sender: FDA-Public Use
  Company Number: None

PATIENT
  Sex: Female
  Weight: 43.54 kg

DRUGS (8)
  1. CAPECITABINE [Suspect]
     Active Substance: CAPECITABINE
     Indication: Pancreatic carcinoma
     Dosage: FREQUENCY : TWICE A DAY;?
     Route: 048
  2. ASPIRIN [Concomitant]
  3. CREON [Concomitant]
  4. EFFEXOR XR [Concomitant]
  5. FAMOTIDINE [Concomitant]
  6. JARDIANCE [Concomitant]
  7. METFORMIN [Concomitant]
  8. VITAMIN B COMPLEX [Concomitant]

REACTIONS (1)
  - Hospitalisation [None]
